FAERS Safety Report 7542430-5 (Version None)
Quarter: 2011Q2

REPORT INFORMATION
  Report Type: 
  Country: None (occurrence: None)
  Receive Date: 20110613
  Receipt Date: 20110308
  Transmission Date: 20111010
  Serious: No
  Sender: FDA-Public Use
  Company Number: A0917529A

PATIENT

DRUGS (1)
  1. NICORETTE (MINT) [Suspect]

REACTIONS (1)
  - DIZZINESS [None]
